FAERS Safety Report 9758046 (Version 2)
Quarter: 2014Q1

REPORT INFORMATION
  Report Type: Spontaneous
  Country: US (occurrence: US)
  Receive Date: 20131216
  Receipt Date: 20140103
  Transmission Date: 20141002
  Serious: Yes (Other)
  Sender: FDA-Public Use
  Company Number: US-AMGEN-USASP2013087271

PATIENT
  Age: 47 Year
  Sex: Female

DRUGS (3)
  1. PROLIA [Suspect]
     Indication: OSTEOPOROSIS POSTMENOPAUSAL
     Route: 065
  2. AMBIEN [Concomitant]
     Dosage: UNK UNK, AS NECESSARY
  3. XANAX [Concomitant]
     Dosage: UNK UNK, AS NECESSARY

REACTIONS (5)
  - Wrist fracture [Unknown]
  - Fall [Unknown]
  - Tooth fracture [Unknown]
  - Tooth disorder [Unknown]
  - Bone disorder [Unknown]
